FAERS Safety Report 4489731-5 (Version None)
Quarter: 2004Q4

REPORT INFORMATION
  Report Type: 
  Country: None (occurrence: None)
  Receive Date: 20041101
  Receipt Date: 20030113
  Transmission Date: 20050328
  Serious: Yes (Life-Threatening, Hospitalization)
  Sender: FDA-Public Use
  Company Number: US-MERCK-0301USA01115

PATIENT
  Age: 49 Year
  Sex: Female
  Weight: 112 kg

DRUGS (12)
  1. ASPIRIN [Concomitant]
     Indication: THROMBOSIS
     Route: 048
     Dates: start: 20020701, end: 20040301
  2. VIOXX [Suspect]
     Indication: ARTHRITIS
     Route: 048
     Dates: start: 20010619, end: 20020615
  3. VIOXX [Suspect]
     Route: 048
     Dates: start: 20020101
  4. VIOXX [Suspect]
     Indication: OSTEOARTHRITIS
     Route: 048
     Dates: start: 20010619, end: 20020615
  5. VIOXX [Suspect]
     Route: 048
     Dates: start: 20020101
  6. ADALAT [Concomitant]
     Indication: HYPERTENSION
     Route: 048
     Dates: start: 19900101
  7. KLOR-CON [Concomitant]
     Indication: MINERAL SUPPLEMENTATION
     Route: 048
  8. ZANTAC [Concomitant]
     Indication: DYSPEPSIA
     Route: 065
  9. PEPCID [Concomitant]
     Route: 065
  10. TYLENOL [Concomitant]
     Route: 065
  11. IBUPROFEN [Concomitant]
     Indication: PAIN
     Route: 065
     Dates: start: 20021201
  12. ALGAE (AS DRUG) [Concomitant]
     Route: 065

REACTIONS (15)
  - CARDIAC FAILURE [None]
  - CEREBROVASCULAR ACCIDENT [None]
  - CHEST PAIN [None]
  - DEPRESSION [None]
  - DRUG INEFFECTIVE [None]
  - DYSPNOEA [None]
  - EMOTIONAL DISTRESS [None]
  - OEDEMA PERIPHERAL [None]
  - PALPITATIONS [None]
  - RENAL FAILURE [None]
  - ROTATOR CUFF SYNDROME [None]
  - SCOLIOSIS [None]
  - SENSORY LOSS [None]
  - SINUS BRADYCARDIA [None]
  - WEIGHT INCREASED [None]
